FAERS Safety Report 7271989-0 (Version None)
Quarter: 2011Q1

REPORT INFORMATION
  Report Type: 
  Country: None (occurrence: None)
  Receive Date: 20110127
  Receipt Date: 20110118
  Transmission Date: 20110831
  Serious: Yes (Hospitalization)
  Sender: FDA-Public Use
  Company Number: APP201100056

PATIENT
  Age: 33 Year
  Sex: Female

DRUGS (2)
  1. ORNIDAZOL (ORNIDAZOLE) [Suspect]
     Indication: VAGINAL INFECTION
     Dosage: 500 MG, 2 IN 1 D
  2. DOXY 100 (DOXYCYCLINE HYCLATE) [Suspect]
     Indication: VAGINAL INFECTION
     Dosage: 500 MG, 2 IN 1 D

REACTIONS (1)
  - PANCREATITIS ACUTE [None]
